FAERS Safety Report 5469726-5 (Version None)
Quarter: 2007Q3

REPORT INFORMATION
  Report Type: 
  Country: None (occurrence: None)
  Receive Date: 20070926
  Receipt Date: 20070926
  Transmission Date: 20080115
  Serious: Yes (Hospitalization)
  Sender: FDA-Public Use
  Company Number: None

PATIENT
  Sex: Female
  Weight: 77.6 kg

DRUGS (3)
  1. FLUOROURACIL [Suspect]
     Dosage: 7360 MG
  2. CISPLATIN [Suspect]
     Dosage: 138 MG
  3. ERBITUX [Suspect]
     Dosage: 460 MG

REACTIONS (8)
  - DIARRHOEA [None]
  - DYSURIA [None]
  - HYPOKALAEMIA [None]
  - HYPOMAGNESAEMIA [None]
  - MUSCLE SPASMS [None]
  - NAUSEA [None]
  - URINARY TRACT INFECTION [None]
  - VOMITING [None]
